FAERS Safety Report 8900674 (Version 4)
Quarter: 2013Q1

REPORT INFORMATION
  Report Type: Report from Study
  Country: US (occurrence: US)
  Receive Date: 20121109
  Receipt Date: 20130307
  Transmission Date: 20140127
  Serious: Yes (Hospitalization)
  Sender: FDA-Public Use
  Company Number: US-JNJFOC-20121100474

PATIENT
  Age: 23 Year
  Sex: Male
  Weight: 67.13 kg

DRUGS (12)
  1. DARUNAVIR [Suspect]
     Indication: HIV INFECTION
     Route: 048
  2. DARUNAVIR [Suspect]
     Indication: HIV INFECTION
     Route: 048
     Dates: start: 20121002
  3. DARUNAVIR [Suspect]
     Indication: HIV INFECTION
     Route: 048
     Dates: start: 20100702
  4. EMTRICITABINE W/TENOFOVIR DISOPROXIL FUMARATE [Suspect]
     Indication: HIV INFECTION
     Route: 048
     Dates: start: 20100702
  5. EMTRICITABINE W/TENOFOVIR DISOPROXIL FUMARATE [Suspect]
     Indication: HIV INFECTION
     Route: 048
  6. EMTRICITABINE W/TENOFOVIR DISOPROXIL FUMARATE [Suspect]
     Indication: HIV INFECTION
     Route: 048
     Dates: start: 20121002
  7. RITONAVIR [Suspect]
     Indication: HIV INFECTION
     Route: 048
     Dates: start: 20121002
  8. RITONAVIR [Suspect]
     Indication: HIV INFECTION
     Route: 048
  9. RITONAVIR [Suspect]
     Indication: HIV INFECTION
     Route: 048
     Dates: start: 20100702
  10. MAGIC MOUTHWASH [Concomitant]
     Dosage: 2 TEASPOONS SWISH AND SPIT 3-4 TIMES A DAY
  11. KETOCONAZOLE [Concomitant]
     Indication: RASH
     Route: 061
  12. ACETAMINOPHEN [Concomitant]

REACTIONS (2)
  - Osteonecrosis [Recovering/Resolving]
  - Arthralgia [Unknown]
